FAERS Safety Report 6048509-1 (Version None)
Quarter: 2009Q1

REPORT INFORMATION
  Report Type: 
  Country: None (occurrence: None)
  Receive Date: 20090123
  Receipt Date: 20090121
  Transmission Date: 20090719
  Serious: Yes (Other)
  Sender: FDA-Public Use
  Company Number: B0555213A

PATIENT

DRUGS (3)
  1. RELENZA [Suspect]
     Indication: DRUG USE FOR UNKNOWN INDICATION
     Route: 055
  2. HOKUNALIN [Concomitant]
     Route: 065
  3. CHLORPHENIRAMINE MALEATE [Concomitant]
     Route: 048

REACTIONS (2)
  - HALLUCINATION [None]
  - TREMOR [None]
